FAERS Safety Report 13522579 (Version 1)
Quarter: 2017Q2

REPORT INFORMATION
  Report Type: Spontaneous
  Country: US (occurrence: US)
  Receive Date: 20170508
  Receipt Date: 20170508
  Transmission Date: 20170830
  Serious: Yes (Other)
  Sender: FDA-Public Use
  Company Number: US-PFIZER INC-2017196732

PATIENT
  Age: 43 Year
  Sex: Female
  Weight: 103 kg

DRUGS (1)
  1. LYRICA [Suspect]
     Active Substance: PREGABALIN
     Indication: SPINAL COLUMN STENOSIS
     Dosage: UNK UNK, 2X/DAY
     Route: 048
     Dates: start: 2015, end: 20170104

REACTIONS (4)
  - Spinal column stenosis [Unknown]
  - Drug effect incomplete [Unknown]
  - Peripheral artery stenosis [Unknown]
  - Condition aggravated [Unknown]

NARRATIVE: CASE EVENT DATE: 2017
